FAERS Safety Report 6711466-6 (Version None)
Quarter: 2010Q2

REPORT INFORMATION
  Report Type: 
  Country: None (occurrence: None)
  Receive Date: 20100505
  Receipt Date: 20100426
  Transmission Date: 20101027
  Serious: Yes (Hospitalization)
  Sender: FDA-Public Use
  Company Number: IT-ASTRAZENECA-2010SE11988

PATIENT
  Age: 39 Year
  Sex: Male

DRUGS (3)
  1. XYLOCAINA [Suspect]
     Indication: LOCAL ANAESTHESIA
     Dates: start: 20100315
  2. BUPIVACAINA [Suspect]
     Indication: ANAESTHESIA
     Dates: start: 20100315
  3. CEFAMEZIN [Suspect]
     Indication: ANTIBIOTIC PROPHYLAXIS
     Route: 042
     Dates: start: 20100315

REACTIONS (6)
  - BRADYCARDIA [None]
  - CONVULSION [None]
  - HYPERTENSION [None]
  - LOSS OF CONSCIOUSNESS [None]
  - MYDRIASIS [None]
  - RASH [None]
